FAERS Safety Report 12084452 (Version 1)
Quarter: 2016Q1

REPORT INFORMATION
  Report Type: Spontaneous
  Country: US (occurrence: US)
  Receive Date: 20160217
  Receipt Date: 20160217
  Transmission Date: 20160526
  Serious: No
  Sender: FDA-Public Use
  Company Number: US-009507513-1602USA004871

PATIENT
  Sex: Female

DRUGS (1)
  1. FOSAMAX [Suspect]
     Active Substance: ALENDRONATE SODIUM
     Route: 048

REACTIONS (4)
  - Blood creatine phosphokinase abnormal [Unknown]
  - Gastrooesophageal reflux disease [Unknown]
  - Creatinine renal clearance abnormal [Unknown]
  - Myalgia [Unknown]
